FAERS Safety Report 5195483-6 (Version None)
Quarter: 2006Q4

REPORT INFORMATION
  Report Type: 
  Country: None (occurrence: None)
  Receive Date: 20061222
  Receipt Date: 20061222
  Transmission Date: 20070319
  Serious: Yes (Hospitalization)
  Sender: FDA-Public Use
  Company Number: None

PATIENT
  Age: 6 Year
  Sex: Male
  Weight: 22 kg

DRUGS (1)
  1. AZENIL 200 MG/5CC PFIZER [Suspect]
     Indication: PHARYNGITIS STREPTOCOCCAL
     Dosage: 11CC 1/DY PO
     Route: 048
     Dates: start: 20061126, end: 20061128

REACTIONS (4)
  - HALLUCINATIONS, MIXED [None]
  - HEADACHE [None]
  - NEUROLOGICAL SYMPTOM [None]
  - PSYCHIATRIC SYMPTOM [None]
